FAERS Safety Report 9322830 (Version 1)
Quarter: 2013Q2

REPORT INFORMATION
  Report Type: Spontaneous
  Country: IT (occurrence: IT)
  Receive Date: 20130603
  Receipt Date: 20130603
  Transmission Date: 20140414
  Serious: Yes (Hospitalization)
  Sender: FDA-Public Use
  Company Number: IT-ROCHE-1231235

PATIENT
  Age: 76 Year
  Sex: Male

DRUGS (2)
  1. AVASTIN [Suspect]
     Indication: MACULOPATHY
     Route: 031
     Dates: start: 20110201, end: 20110305
  2. AVASTIN [Suspect]
     Indication: OFF LABEL USE

REACTIONS (1)
  - Pemphigoid [Recovered/Resolved]
